FAERS Safety Report 13130143 (Version 1)
Quarter: 2017Q1

REPORT INFORMATION
  Report Type: Report from Study
  Country: US (occurrence: US)
  Receive Date: 20170119
  Receipt Date: 20170119
  Transmission Date: 20170428
  Serious: Yes (Life-Threatening, Other)
  Sender: FDA-Public Use
  Company Number: US-VIIV HEALTHCARE LIMITED-US2017004785

PATIENT
  Age: 21 Year
  Sex: Male

DRUGS (4)
  1. RIFAPENTINE [Concomitant]
     Active Substance: RIFAPENTINE
     Dosage: 900 MG, WE
     Route: 048
     Dates: start: 20160628
  2. PYRIDOXINE [Concomitant]
     Active Substance: PYRIDOXINE
     Dosage: 50 MG, QD
     Route: 048
  3. DOLUTEGRAVIR [Suspect]
     Active Substance: DOLUTEGRAVIR
     Indication: DRUG LEVEL
     Dosage: 50 MG, QD
     Route: 048
     Dates: start: 20160624
  4. ISONIAZIDE [Concomitant]
     Active Substance: ISONIAZID
     Indication: DRUG LEVEL
     Dosage: 900 MG, WE
     Route: 048
     Dates: start: 20160628

REACTIONS (2)
  - Influenza like illness [Unknown]
  - Lymphocyte count decreased [Recovered/Resolved]

NARRATIVE: CASE EVENT DATE: 20160713
